FAERS Safety Report 5851779-3 (Version None)
Quarter: 2008Q3

REPORT INFORMATION
  Report Type: 
  Country: None (occurrence: None)
  Receive Date: 20080808
  Receipt Date: 20080312
  Transmission Date: 20090109
  Serious: Yes (Hospitalization)
  Sender: FDA-Public Use
  Company Number: 2008-01966

PATIENT
  Age: 2 Year
  Sex: Female

DRUGS (1)
  1. CARTIA XT [Suspect]
     Dosage: 1 CAPSUL, SINGLE, ORAL
     Route: 048
     Dates: start: 20080312, end: 20080312

REACTIONS (1)
  - NO ADVERSE EVENT [None]
